FAERS Safety Report 15409281 (Version 1)
Quarter: 2018Q3

REPORT INFORMATION
  Report Type: Spontaneous
  Country: AT (occurrence: AT)
  Receive Date: 20180920
  Receipt Date: 20180920
  Transmission Date: 20181010
  Serious: Yes (Death, Hospitalization, Other)
  Sender: FDA-Public Use
  Company Number: AT-SA-2018SA111844

PATIENT
  Age: 56 Year
  Sex: Male

DRUGS (26)
  1. PREDNISONE. [Suspect]
     Active Substance: PREDNISONE
     Dosage: UNK
     Dates: start: 199505
  2. DAUNORUBICIN [Suspect]
     Active Substance: DAUNORUBICIN
     Dosage: 45 UG/M2, QCY
     Dates: start: 199406
  3. AMPHOTERICIN B. [Suspect]
     Active Substance: AMPHOTERICIN B
     Indication: ASPERGILLUS INFECTION
     Dosage: UNK UNK,UNK
     Route: 042
  4. CYCLOSPORIN A [Suspect]
     Active Substance: CYCLOSPORINE
     Dosage: CSA DOSE WASADJUSTED TO PLASMA LEVELS OF APPROXIMATELY 100 NG/ML
  5. GRANULOCYTE COLONY STIMULATING FACTOR [Concomitant]
     Active Substance: GRANULOCYTE COLONY-STIMULATING FACTOR NOS
     Indication: APLASIA
     Dosage: 300 UG,QD
     Route: 065
  6. PIPERACILLIN [Suspect]
     Active Substance: PIPERACILLIN
     Indication: SEPSIS
     Dosage: UNK UNK,UNK
     Route: 065
  7. CYCLOSPORIN A [Suspect]
     Active Substance: CYCLOSPORINE
     Indication: IMMUNOSUPPRESSION
     Dosage: UNK UNK,UNK
     Route: 065
     Dates: start: 199306
  8. VANCOMYCIN HYDROCHLORIDE. [Suspect]
     Active Substance: VANCOMYCIN HYDROCHLORIDE
     Indication: SEPSIS
  9. AZATHIOPRINE. [Suspect]
     Active Substance: AZATHIOPRINE
     Indication: IMMUNOSUPPRESSION
     Dosage: UNK
     Dates: start: 199505
  10. SULFAMETHOXAZOLE/TRIMETHOPRIM [Suspect]
     Active Substance: SULFAMETHOXAZOLE\TRIMETHOPRIM
     Indication: PROPHYLAXIS
     Dosage: UNK UNK,UNK
     Route: 065
  11. FLUCONAZOLE. [Suspect]
     Active Substance: FLUCONAZOLE
     Indication: ANTIFUNGAL PROPHYLAXIS
     Dosage: 200 MG,QD
     Route: 065
  12. NORFLOXACIN [Suspect]
     Active Substance: NORFLOXACIN
     Indication: ANTIBIOTIC PROPHYLAXIS
     Dosage: 400 MG,BID
     Route: 065
  13. FUSIDIC ACID [Suspect]
     Active Substance: FUSIDIC ACID
     Indication: STAPHYLOCOCCAL SEPSIS
  14. AZATHIOPRINE. [Suspect]
     Active Substance: AZATHIOPRINE
     Indication: ACUTE MYELOID LEUKAEMIA
     Dosage: UNK UNK,UNK
     Route: 065
     Dates: start: 199306, end: 1994
  15. CYCLOSPORIN A [Suspect]
     Active Substance: CYCLOSPORINE
     Dosage: UNK
     Dates: start: 199505
  16. ETOPOSIDE. [Suspect]
     Active Substance: ETOPOSIDE
     Dosage: 100 UNK (DAYS 1?5)
     Dates: start: 199406
  17. PIPERACILLIN [Suspect]
     Active Substance: PIPERACILLIN
     Indication: ENTEROCOCCAL INFECTION
  18. PREDNISONE. [Suspect]
     Active Substance: PREDNISONE
     Indication: IMMUNOSUPPRESSION
     Dosage: UNK UNK,UNK
     Route: 065
     Dates: start: 199306
  19. CYTARABINE. [Suspect]
     Active Substance: CYTARABINE
     Indication: ACUTE MYELOID LEUKAEMIA
     Dosage: 200 MG/M2,QD ( DAY 1?7)
     Route: 065
     Dates: start: 199403
  20. DAUNORUBICIN [Suspect]
     Active Substance: DAUNORUBICIN
     Indication: ACUTE MYELOID LEUKAEMIA
     Dosage: 45 UG/M2,QCY
     Route: 065
     Dates: start: 199403
  21. ANTI?THYMOCYTE GLOBULIN (RABBIT) NOS [Suspect]
     Active Substance: LAPINE T-LYMPHOCYTE IMMUNE GLOBULIN
     Indication: IMMUNOSUPPRESSION
     Dosage: UNK UNK,UNK
     Route: 065
     Dates: start: 199306
  22. PREDNISONE. [Suspect]
     Active Substance: PREDNISONE
     Dosage: DOSE REDUCED
     Dates: start: 199403
  23. CYTARABINE. [Suspect]
     Active Substance: CYTARABINE
     Dosage: 200 UNK, QD ( DAY 1?5)
     Dates: start: 199406
  24. ETOPOSIDE. [Suspect]
     Active Substance: ETOPOSIDE
     Indication: ACUTE MYELOID LEUKAEMIA
     Dosage: 100 MG/M2,UNK ( DAYS 1?5)
     Route: 065
     Dates: start: 199403
  25. VANCOMYCIN HYDROCHLORIDE. [Suspect]
     Active Substance: VANCOMYCIN HYDROCHLORIDE
     Indication: ENTEROCOCCAL INFECTION
     Dosage: UNK UNK,UNK
     Route: 065
  26. VANCOMYCIN HYDROCHLORIDE. [Suspect]
     Active Substance: VANCOMYCIN HYDROCHLORIDE
     Indication: STAPHYLOCOCCAL INFECTION

REACTIONS (14)
  - Pseudomonal sepsis [Fatal]
  - Dyspnoea [Fatal]
  - Staphylococcal sepsis [Unknown]
  - Chest pain [Fatal]
  - Diarrhoea [Unknown]
  - Pyrexia [Recovering/Resolving]
  - Aspergilloma [Recovered/Resolved]
  - Acute myeloid leukaemia [Recovered/Resolved]
  - Drug ineffective [Fatal]
  - Klebsiella sepsis [Unknown]
  - Aspergillus infection [Recovering/Resolving]
  - Enterococcal sepsis [Recovering/Resolving]
  - Lung infiltration [Recovering/Resolving]
  - Bone marrow failure [Unknown]

NARRATIVE: CASE EVENT DATE: 199403
